FAERS Safety Report 7290312-9 (Version None)
Quarter: 2011Q1

REPORT INFORMATION
  Report Type: 
  Country: None (occurrence: None)
  Receive Date: 20110214
  Receipt Date: 20110207
  Transmission Date: 20110831
  Serious: Yes (Other)
  Sender: FDA-Public Use
  Company Number: IT-B.I. PHARMACEUTICALS,INC./RIDGEFIELD-2011-DE-00952GD

PATIENT

DRUGS (7)
  1. CHIROCAINA [Suspect]
     Indication: NERVE BLOCK
     Route: 008
  2. MIDAZOLAM [Suspect]
     Indication: ANAESTHETIC PREMEDICATION
     Dosage: 0.5 MG/KG
     Route: 048
  3. SEVOFLURANE [Suspect]
     Indication: INDUCTION AND MAINTENANCE OF ANAESTHESIA
     Dosage: STRENGTH: 8% IN 50% OXYGEN-AIR
     Route: 055
  4. OXYGEN [Concomitant]
     Indication: INDUCTION AND MAINTENANCE OF ANAESTHESIA
     Dosage: STRENGTH: 8% IN 50% OXYGEN-AIR
     Route: 055
  5. CLONIDINE [Suspect]
     Indication: NERVE BLOCK
     Dosage: STRENGTH: 1 MCG/ML; DAILY DOSE: 1 MCG/KG
     Route: 008
  6. OXYGEN [Concomitant]
     Dosage: STRENGTH: {8% SEVOFLURANE IN 50% OXYGEN-AIR
     Route: 055
  7. SEVOFLURANE [Suspect]
     Dosage: STRENGTH: REDUCED TO AN AGE-ADJUSTED END-TIDAL CONCENTRATION OF 1 MINIMUM ALVEOLAR ANESTHETIC CONCEN
     Route: 055

REACTIONS (1)
  - APNOEA [None]
